FAERS Safety Report 18641969 (Version 1)
Quarter: 2020Q4

REPORT INFORMATION
  Report Type: Spontaneous
  Country: US (occurrence: US)
  Receive Date: 20201218
  Receipt Date: 20201218
  Transmission Date: 20210114
  Serious: No
  Sender: FDA-Public Use
  Company Number: None

PATIENT
  Age: 56 Year
  Sex: Female

DRUGS (1)
  1. TACROLIMUS (STRIDES) 1MG STRIDES PHARMA [Suspect]
     Active Substance: TACROLIMUS
     Indication: LIVER TRANSPLANT
     Route: 048
     Dates: start: 202007

REACTIONS (4)
  - Coronavirus test negative [None]
  - Chills [None]
  - Nausea [None]
  - Pyrexia [None]

NARRATIVE: CASE EVENT DATE: 20201207
